FAERS Safety Report 9722239 (Version 1)
Quarter: 2013Q4

REPORT INFORMATION
  Report Type: Spontaneous
  Country: CA (occurrence: CA)
  Receive Date: 20131202
  Receipt Date: 20131202
  Transmission Date: 20140711
  Serious: No
  Sender: FDA-Public Use
  Company Number: CA-JNJFOC-20131116153

PATIENT
  Age: 33 Year
  Sex: Female
  Weight: 69.85 kg

DRUGS (4)
  1. DURAGESIC [Suspect]
     Indication: PAIN
     Route: 062
  2. DURAGESIC [Suspect]
     Indication: PAIN
     Route: 062
     Dates: start: 201310
  3. MARIJUANA [Concomitant]
     Indication: NAUSEA
     Route: 048
  4. MARIJUANA [Concomitant]
     Indication: PAIN
     Route: 048

REACTIONS (11)
  - Wrong technique in drug usage process [Not Recovered/Not Resolved]
  - Product quality issue [Unknown]
  - Motion sickness [Recovered/Resolved]
  - Vomiting [Recovered/Resolved]
  - Product quality issue [Unknown]
  - Wrong technique in drug usage process [Unknown]
  - Application site erythema [Not Recovered/Not Resolved]
  - Application site erosion [Not Recovered/Not Resolved]
  - Wrong technique in drug usage process [Unknown]
  - Dermatitis contact [Unknown]
  - Drug prescribing error [Unknown]
